FAERS Safety Report 9617715 (Version 2)
Quarter: 2013Q4

REPORT INFORMATION
  Report Type: Report from Study
  Country: AU (occurrence: AU)
  Receive Date: 20131011
  Receipt Date: 20131022
  Transmission Date: 20140711
  Serious: Yes (Other)
  Sender: FDA-Public Use
  Company Number: PHHY2013AU114189

PATIENT
  Age: 63 Year
  Sex: Male

DRUGS (6)
  1. ACLASTA [Suspect]
     Dosage: 5 MG
     Route: 042
     Dates: start: 20121031
  2. CALTRATE [Concomitant]
     Dosage: 1 DF
  3. CELEBREX [Concomitant]
     Dosage: 1 DF, WITH DIMER
  4. OSTEO D//COLECALCIFEROL [Concomitant]
     Dosage: 2 DF, UNK
  5. VALTREX [Concomitant]
     Dosage: 1 DF, PRN
  6. PANADOL [Concomitant]
     Dosage: UNK

REACTIONS (4)
  - Pneumonia [Recovered/Resolved]
  - Hepatic steatosis [Unknown]
  - Plantar fasciitis [Recovering/Resolving]
  - Osteoarthritis [Not Recovered/Not Resolved]
